FAERS Safety Report 14398334 (Version 4)
Quarter: 2018Q3

REPORT INFORMATION
  Report Type: Spontaneous
  Country: US (occurrence: US)
  Receive Date: 20180116
  Receipt Date: 20180724
  Transmission Date: 20181010
  Serious: Yes (Hospitalization, Other)
  Sender: FDA-Public Use
  Company Number: US-GLAXOSMITHKLINE-US2018GSK007330

PATIENT
  Age: 60 Year
  Sex: Female

DRUGS (6)
  1. BENLYSTA [Suspect]
     Active Substance: BELIMUMAB
     Indication: SYSTEMIC LUPUS ERYTHEMATOSUS
     Dosage: UNK UNK, CYC
     Route: 042
     Dates: start: 2015, end: 201707
  2. METHYLPREDNISONE DOSE PACK [Concomitant]
     Active Substance: METHYLPREDNISOLONE
  3. SERZONE [Concomitant]
     Active Substance: NEFAZODONE HYDROCHLORIDE
  4. ESTRADIOL. [Concomitant]
     Active Substance: ESTRADIOL
  5. PULMICORT TURBUHALER [Concomitant]
     Active Substance: BUDESONIDE
  6. PLAQUENIL [Concomitant]
     Active Substance: HYDROXYCHLOROQUINE SULFATE

REACTIONS (12)
  - Diverticulitis [Recovered/Resolved]
  - Nasopharyngitis [Unknown]
  - Gastritis [Recovered/Resolved]
  - Malaise [Unknown]
  - Vomiting [Unknown]
  - Laryngitis [Recovered/Resolved]
  - Skin papilloma [Not Recovered/Not Resolved]
  - Cystitis [Recovered/Resolved]
  - Fungal infection [Recovered/Resolved]
  - Immune system disorder [Not Recovered/Not Resolved]
  - Nausea [Unknown]
  - Bronchitis [Recovered/Resolved]

NARRATIVE: CASE EVENT DATE: 201701
